FAERS Safety Report 9964271 (Version 2)
Quarter: 2014Q1

REPORT INFORMATION
  Report Type: Report from Study
  Country: JP (occurrence: JP)
  Receive Date: 20140305
  Receipt Date: 20140305
  Transmission Date: 20141002
  Serious: Yes (Hospitalization)
  Sender: FDA-Public Use
  Company Number: JP-TAKEDA-TCI2013A03420

PATIENT
  Age: 75 Year
  Sex: Female
  Weight: 40 kg

DRUGS (11)
  1. LANSOPRAZOLE [Suspect]
     Indication: PROPHYLAXIS AGAINST GASTROINTESTINAL ULCER
     Dosage: 15 MG, QD
     Route: 048
     Dates: start: 20120315
  2. ACTOS [Concomitant]
     Dosage: 7.5 MG, 1 DAYS
     Route: 048
     Dates: start: 20080509, end: 20120712
  3. BENET TABLETS 17.5MG [Concomitant]
     Dosage: 17.5 MG, 1/WEEK
     Route: 048
     Dates: start: 20101119
  4. BAYASPIRIN [Concomitant]
     Indication: THROMBOSIS PROPHYLAXIS
     Dosage: 100 MG, 1 DAYS
     Route: 048
     Dates: start: 20030326
  5. AMARYL [Concomitant]
     Dosage: 5 MG, 1 DAYS
     Route: 048
     Dates: start: 20050408
  6. SEIBULE [Concomitant]
     Dosage: 150 MG, 1 DAYS
     Route: 048
     Dates: start: 20080313
  7. PANALDINE [Concomitant]
     Indication: CEREBRAL INFARCTION
     Dosage: 200 MG, 1 DAYS
     Route: 048
     Dates: start: 20070507
  8. LIPITOR [Concomitant]
     Dosage: 10 MG, 1 DAYS
     Route: 048
     Dates: start: 20030326
  9. EXFORGE [Concomitant]
     Dosage: 1 DF, 1 DAYS
     Route: 048
     Dates: start: 20111017
  10. MAINTATE [Concomitant]
     Dosage: 2.5 MG,1 DAYS
     Route: 048
     Dates: start: 20111216, end: 20120712
  11. MAINTATE [Concomitant]
     Dosage: 5 MG,1 DAYS
     Route: 048
     Dates: start: 20120713

REACTIONS (5)
  - Femoral neck fracture [Recovered/Resolved]
  - Fall [Recovered/Resolved]
  - Diabetes mellitus [Recovering/Resolving]
  - Glycosylated haemoglobin increased [Unknown]
  - Hypertension [Recovering/Resolving]
